FAERS Safety Report 7318451-4 (Version None)
Quarter: 2011Q1

REPORT INFORMATION
  Report Type: 
  Country: None (occurrence: None)
  Receive Date: 20110228
  Receipt Date: 20110223
  Transmission Date: 20110831
  Serious: Yes (Other)
  Sender: FDA-Public Use
  Company Number: US-PFIZER INC-2011040028

PATIENT
  Sex: Male
  Weight: 113 kg

DRUGS (2)
  1. PAROXETINE [Concomitant]
     Indication: ANXIETY
     Dosage: 40 MG, UNK
  2. CHANTIX [Suspect]
     Indication: SMOKING CESSATION THERAPY
     Dosage: 0.5 MG, 2X/DAY
     Route: 048
     Dates: start: 20110217, end: 20110223

REACTIONS (1)
  - DEPRESSION [None]
